FAERS Safety Report 11471243 (Version 6)
Quarter: 2016Q1

REPORT INFORMATION
  Report Type: Report from Study
  Country: US (occurrence: US)
  Receive Date: 20150908
  Receipt Date: 20160106
  Transmission Date: 20160525
  Serious: Yes (Death, Hospitalization)
  Sender: FDA-Public Use
  Company Number: US-SA-2015SA132842

PATIENT
  Age: 62 Year
  Sex: Male
  Weight: 59.87 kg

DRUGS (27)
  1. TIZANIDINE. [Concomitant]
     Active Substance: TIZANIDINE
  2. MELOXICAM. [Concomitant]
     Active Substance: MELOXICAM
  3. CLONAZEPAM. [Concomitant]
     Active Substance: CLONAZEPAM
     Dosage: AS NEEDED
  4. VITAMIN D [Concomitant]
     Active Substance: CHOLECALCIFEROL
  5. ATORVASTATIN [Concomitant]
     Active Substance: ATORVASTATIN
  6. ACYCLOVIR. [Concomitant]
     Active Substance: ACYCLOVIR
  7. HYDROCHLOROTHIAZIDE. [Concomitant]
     Active Substance: HYDROCHLOROTHIAZIDE
  8. SOLU-MEDROL [Suspect]
     Active Substance: METHYLPREDNISOLONE SODIUM SUCCINATE
     Route: 042
     Dates: start: 20150415, end: 20150417
  9. TRAMADOL. [Concomitant]
     Active Substance: TRAMADOL
     Dosage: 1-2 FOUR TIMES A DAY AS NEEDED
  10. PANTOPRAZOLE [Concomitant]
     Active Substance: PANTOPRAZOLE SODIUM
     Dosage: DELAYED RELEASE 1 DAILY
  11. DIPHENHYDRAMINE. [Concomitant]
     Active Substance: DIPHENHYDRAMINE
     Dosage: 1 EVERY 4 HOURS
  12. PREDNISONE. [Concomitant]
     Active Substance: PREDNISONE
     Dosage: 1 THREE TIMES A DAY
  13. BUSPIRONE [Concomitant]
     Active Substance: BUSPIRONE HYDROCHLORIDE
     Dosage: 1 THREE TIMES A DAY
  14. CITALOPRAM [Concomitant]
     Active Substance: CITALOPRAM HYDROBROMIDE
     Dosage: 1 AT BEDTIME
  15. TRAMADOL. [Concomitant]
     Active Substance: TRAMADOL
  16. POTASSIUM [Concomitant]
     Active Substance: POTASSIUM
  17. TRAZODONE [Concomitant]
     Active Substance: TRAZODONE HYDROCHLORIDE
     Dosage: FREQ: QHS
  18. ACYCLOVIR. [Concomitant]
     Active Substance: ACYCLOVIR
     Dosage: 1 TWICE A DAY
  19. TIZANIDINE. [Concomitant]
     Active Substance: TIZANIDINE
     Dosage: 2 TABS
  20. METOPROLOL TARTRATE. [Concomitant]
     Active Substance: METOPROLOL TARTRATE
     Dosage: 1 TWICE A DAY
  21. MEPERIDINE [Concomitant]
     Active Substance: MEPERIDINE
     Dosage: 1 EVERY 4-6 HOURS AS NEEDED
  22. ASPIRIN. [Concomitant]
     Active Substance: ASPIRIN
  23. RISPERIDONE. [Concomitant]
     Active Substance: RISPERIDONE
     Dosage: 1 AT BEDTIME
  24. ALEMTUZUMAB [Suspect]
     Active Substance: ALEMTUZUMAB
     Indication: MULTIPLE SCLEROSIS
     Route: 042
     Dates: start: 20150415, end: 20150417
  25. GABAPENTIN. [Concomitant]
     Active Substance: GABAPENTIN
  26. HYDROXYZINE HYDROCHLORIDE. [Concomitant]
     Active Substance: HYDROXYZINE HYDROCHLORIDE
     Dosage: 1 THREE TIMES A DAY AS NEEDED
  27. ASPIRIN. [Concomitant]
     Active Substance: ASPIRIN
     Dosage: 1 DAILY

REACTIONS (5)
  - Death [Fatal]
  - Anaemia [Unknown]
  - Atrial fibrillation [Unknown]
  - Hypotension [Unknown]
  - Haemolytic anaemia [Unknown]

NARRATIVE: CASE EVENT DATE: 20150819
